FAERS Safety Report 9900323 (Version 2)
Quarter: 2014Q1

REPORT INFORMATION
  Report Type: Spontaneous
  Country: US (occurrence: US)
  Receive Date: 20140216
  Receipt Date: 20140217
  Transmission Date: 20141002
  Serious: No
  Sender: FDA-Public Use
  Company Number: US-009507513-1402USA006234

PATIENT
  Sex: 0

DRUGS (2)
  1. INTEGRILIN [Suspect]
     Indication: THROMBOSIS
     Dosage: 0.5 MICROGRAM/KG/MIN
  2. ASPIRIN [Concomitant]
     Dosage: 325 MG

REACTIONS (1)
  - Gastrointestinal haemorrhage [Unknown]
